FAERS Safety Report 6498853-9 (Version None)
Quarter: 2009Q4

REPORT INFORMATION
  Report Type: 
  Country: None (occurrence: None)
  Receive Date: 20091215
  Receipt Date: 20091214
  Transmission Date: 20100525
  Serious: Yes (Death)
  Sender: FDA-Public Use
  Company Number: US-JNJFOC-20090703841

PATIENT
  Age: 18 Month
  Sex: Male

DRUGS (2)
  1. TYLENOL (CAPLET) [Suspect]
     Route: 048
  2. TYLENOL (CAPLET) [Suspect]
     Indication: MEDICATION ERROR
     Route: 048

REACTIONS (8)
  - DEATH [None]
  - DIARRHOEA [None]
  - INFECTION [None]
  - LIVER FUNCTION TEST ABNORMAL [None]
  - NAUSEA [None]
  - RENAL FAILURE [None]
  - RESPIRATORY DISORDER [None]
  - VOMITING [None]
